FAERS Safety Report 7757618-8 (Version None)
Quarter: 2011Q3

REPORT INFORMATION
  Report Type: 
  Country: None (occurrence: None)
  Receive Date: 20110916
  Receipt Date: 20110913
  Transmission Date: 20111222
  Serious: Yes (Hospitalization)
  Sender: FDA-Public Use
  Company Number: BE-ABBOTT-11P-013-0854638-00

PATIENT
  Age: 35 Year
  Sex: Male

DRUGS (3)
  1. ACETYLCHOLINE CHLORIDE [Concomitant]
     Indication: PRODUCT USED FOR UNKNOWN INDICATION
  2. HUMIRA [Suspect]
     Indication: ANKYLOSING SPONDYLITIS
  3. HUMIRA [Suspect]

REACTIONS (2)
  - MUSCULAR WEAKNESS [None]
  - DIABETIC COMA [None]
